FAERS Safety Report 10066577 (Version 1)
Quarter: 2014Q2

REPORT INFORMATION
  Report Type: Spontaneous
  Country: US (occurrence: None)
  Receive Date: 20140401
  Receipt Date: 20140401
  Transmission Date: 20141212
  Serious: Yes (Other)
  Sender: FDA-Public Use
  Company Number: PHEH2013US011639

PATIENT
  Age: 85 Year
  Sex: Male

DRUGS (5)
  1. EXELON PATCH [Suspect]
     Route: 062
  2. OMEPRAZOLE [Concomitant]
  3. LOVASTA (LOVASTATIN) [Concomitant]
  4. CM PROMETHAZINE (PROMETHAZINE) [Concomitant]
  5. CARAFATE (SUCRALFATE) TABLET, 1G [Concomitant]

REACTIONS (4)
  - Weight decreased [None]
  - Pruritus [None]
  - Skin induration [None]
  - Cough [None]
